FAERS Safety Report 7957714-6 (Version None)
Quarter: 2011Q4

REPORT INFORMATION
  Report Type: 
  Country: None (occurrence: None)
  Receive Date: 20111205
  Receipt Date: 20111129
  Transmission Date: 20120403
  Serious: Yes (Death, Other)
  Sender: FDA-Public Use
  Company Number: PHHY2010IE01065

PATIENT
  Sex: Female

DRUGS (15)
  1. CLOZARIL [Suspect]
     Dosage: 250 MG
     Dates: start: 20050101
  2. ERYTHROMYCIN [Suspect]
     Dates: start: 20091201
  3. PANTOPRAZOLE [Concomitant]
     Dosage: 40 MG
     Route: 048
  4. PREDNISOLONE [Concomitant]
     Dosage: 20 MG, QD
     Dates: start: 20091216, end: 20091221
  5. KWELLS [Concomitant]
     Dosage: UNK UKN, UNK
  6. ALBUTEROL SULFATE AUTOHALER [Concomitant]
  7. CLOZARIL [Suspect]
     Indication: SCHIZOPHRENIA
     Dosage: 650 MG, QD
     Route: 048
     Dates: start: 20060214
  8. KEFLEX [Concomitant]
     Dosage: 250 MG, QID
     Dates: start: 20091208, end: 20091215
  9. ERYTHROMYCIN [Suspect]
     Dates: start: 20050101
  10. SOLIFENACIN SUCCINATE [Concomitant]
     Dosage: 10 MG
  11. CANESTEN-HC [Concomitant]
     Route: 061
  12. CLARITHROMYCIN [Concomitant]
  13. ERYTHROMYCIN [Suspect]
     Indication: RESPIRATORY TRACT INFECTION
     Dates: end: 20091230
  14. FLURAZEPAM [Concomitant]
     Dosage: 15 MG, NOCTE
  15. ATENOLOL [Concomitant]
     Dosage: 25 MG
     Route: 048

REACTIONS (7)
  - ANTIPSYCHOTIC DRUG LEVEL ABOVE THERAPEUTIC [None]
  - OVERDOSE [None]
  - COMPLETED SUICIDE [None]
  - MALAISE [None]
  - ASPIRATION [None]
  - TOXICITY TO VARIOUS AGENTS [None]
  - RESPIRATORY TRACT INFECTION [None]
